FAERS Safety Report 4928914-4 (Version None)
Quarter: 2006Q1

REPORT INFORMATION
  Report Type: 
  Country: None (occurrence: None)
  Receive Date: 20060223
  Receipt Date: 20060211
  Transmission Date: 20060701
  Serious: Yes (Other)
  Sender: FDA-Public Use
  Company Number: 2006011351

PATIENT
  Sex: Male

DRUGS (1)
  1. LYRICA [Suspect]
     Indication: DIABETIC NEUROPATHY
     Dosage: 300 MG (150 MG, 2 IN 1 D)
     Dates: start: 20051001

REACTIONS (4)
  - BLADDER CANCER RECURRENT [None]
  - BREAST PAIN [None]
  - GYNAECOMASTIA [None]
  - SEDATION [None]
